FAERS Safety Report 5622400-4 (Version None)
Quarter: 2008Q1

REPORT INFORMATION
  Report Type: 
  Country: None (occurrence: None)
  Receive Date: 20080211
  Receipt Date: 20080130
  Transmission Date: 20080703
  Serious: Yes (Other)
  Sender: FDA-Public Use
  Company Number: US-PFIZER INC-2007103003

PATIENT
  Age: 63 Year
  Sex: Female
  Weight: 125.2 kg

DRUGS (2)
  1. NEURONTIN [Suspect]
     Indication: NEUROPATHY PERIPHERAL
     Route: 048
     Dates: start: 20071126, end: 20071203
  2. NAPROXEN [Interacting]
     Indication: BACK PAIN
     Route: 048
     Dates: start: 20071129, end: 20071203

REACTIONS (4)
  - DRUG INTERACTION [None]
  - NERVE COMPRESSION [None]
  - NERVE CONDUCTION STUDIES ABNORMAL [None]
  - TREMOR [None]
